FAERS Safety Report 21977645 (Version 2)
Quarter: 2023Q1

REPORT INFORMATION
  Report Type: Report from Study
  Country: BR (occurrence: None)
  Receive Date: 20230210
  Receipt Date: 20230220
  Transmission Date: 20230418
  Serious: Yes (Hospitalization)
  Sender: FDA-Public Use
  Company Number: BR-ROCHE-3279981

PATIENT
  Age: 41 Year
  Sex: Female
  Weight: 45 kg

DRUGS (15)
  1. COBIMETINIB [Suspect]
     Active Substance: COBIMETINIB
     Indication: Malignant melanoma
     Dosage: DOSE LAST STUDY DRUG ADMIN PRIOR SAE IS 20 MG, DATE OF MOST RECENT DOSE OF STUDY DRUG PRIOR TO SAE 1
     Route: 048
     Dates: start: 20171209
  2. VEMURAFENIB [Suspect]
     Active Substance: VEMURAFENIB
     Indication: Malignant melanoma
     Dosage: DOSE LAST STUDY DRUG ADMIN PRIOR AE IS 1200 TABLET, DATE OF MOST RECENT DOSE OF STUDY DRUG PRIOR TO
     Route: 048
     Dates: start: 20171209
  3. ATEZOLIZUMAB [Suspect]
     Active Substance: ATEZOLIZUMAB
     Indication: Malignant melanoma
     Dosage: DATE OF MOST RECENT DOSE OF STUDY DRUG PRIOR TO SAE 13/JAN/2023
     Route: 041
     Dates: start: 20180105
  4. OMEPRAZOLE [Concomitant]
     Active Substance: OMEPRAZOLE
     Route: 048
     Dates: start: 20050115
  5. NOMEGESTROL ACETATE [Concomitant]
     Active Substance: NOMEGESTROL ACETATE
     Route: 048
     Dates: start: 201810
  6. ESTRADIOL [Concomitant]
     Active Substance: ESTRADIOL
     Route: 048
     Dates: start: 201810
  7. DIPYRONE [Concomitant]
     Active Substance: DIPYRONE
     Route: 048
     Dates: start: 20210112
  8. HYDRABIO [Concomitant]
     Route: 061
     Dates: start: 20220502
  9. EUCERIN [Concomitant]
     Active Substance: ENSULIZOLE\EUCERIN\OCTINOXATE\OCTISALATE\TITANIUM DIOXIDE\ZINC OXIDE
     Route: 065
     Dates: start: 20210502
  10. VERUTEX B [Concomitant]
     Route: 061
     Dates: start: 20210616
  11. ALPRAZOLAM [Concomitant]
     Active Substance: ALPRAZOLAM
     Route: 048
     Dates: start: 20190607
  12. FERROUS SULFATE [Concomitant]
     Active Substance: FERROUS SULFATE
     Route: 048
     Dates: start: 20220615
  13. FOLIC ACID [Concomitant]
     Active Substance: FOLIC ACID
     Dates: start: 20220615
  14. DIPYRONE\PROMETHAZINE HYDROCHLORIDE [Concomitant]
     Active Substance: DIPYRONE\PROMETHAZINE HYDROCHLORIDE
     Route: 048
     Dates: start: 20220725
  15. DIPYRONE [Concomitant]
     Active Substance: DIPYRONE
     Route: 065
     Dates: start: 20221206

REACTIONS (1)
  - Erysipelas [Recovering/Resolving]

NARRATIVE: CASE EVENT DATE: 20230128
